FAERS Safety Report 4839744-6 (Version None)
Quarter: 2005Q4

REPORT INFORMATION
  Report Type: 
  Country: None (occurrence: None)
  Receive Date: 20051129
  Receipt Date: 20050802
  Transmission Date: 20060501
  Serious: No
  Sender: FDA-Public Use
  Company Number: US-GLAXOSMITHKLINE-A0568645A

PATIENT
  Age: 24 Year
  Sex: Female

DRUGS (5)
  1. WELLBUTRIN SR [Suspect]
     Indication: DEPRESSION
     Dosage: 100MG TWICE PER DAY
     Route: 048
     Dates: start: 20050328
  2. RISPERDAL [Concomitant]
  3. NALTREXONE [Concomitant]
  4. BUSPAR [Concomitant]
  5. TOPAMAX [Concomitant]

REACTIONS (1)
  - AMENORRHOEA [None]
